FAERS Safety Report 9699062 (Version 2)
Quarter: 2014Q2

REPORT INFORMATION
  Report Type: Spontaneous
  Country: US (occurrence: US)
  Receive Date: 20131120
  Receipt Date: 20140618
  Transmission Date: 20141212
  Serious: Yes (Other)
  Sender: FDA-Public Use
  Company Number: US-009507513-1311USA008623

PATIENT
  Sex: Female
  Weight: 97.51 kg

DRUGS (4)
  1. NUVARING [Suspect]
     Indication: CONTRACEPTION
     Dosage: UNK
     Route: 067
     Dates: start: 20111122, end: 20111227
  2. METOPROLOL [Concomitant]
     Route: 048
  3. HYDROCHLOROTHIAZIDE [Concomitant]
     Route: 048
  4. ZOCOR [Concomitant]
     Route: 048

REACTIONS (5)
  - Pulmonary embolism [Unknown]
  - Coagulopathy [Unknown]
  - Thrombosis [Unknown]
  - Embolism [Unknown]
  - Deep vein thrombosis [Unknown]
